FAERS Safety Report 7144798-0 (Version None)
Quarter: 2010Q4

REPORT INFORMATION
  Report Type: 
  Country: None (occurrence: None)
  Receive Date: 20101112
  Receipt Date: 20100727
  Transmission Date: 20110411
  Serious: Yes (Other)
  Sender: FDA-Public Use
  Company Number: 1000014892

PATIENT
  Age: 51 Year
  Sex: Female

DRUGS (7)
  1. SAVELLA [Suspect]
     Indication: DEPRESSION
     Dosage: SEE IMAGE
     Route: 048
     Dates: start: 20100601, end: 20100601
  2. SAVELLA [Suspect]
     Indication: DEPRESSION
     Dosage: SEE IMAGE
     Route: 048
     Dates: start: 20100601, end: 20100601
  3. SAVELLA [Suspect]
     Indication: DEPRESSION
     Dosage: SEE IMAGE
     Route: 048
     Dates: start: 20100601, end: 20100601
  4. SAVELLA [Suspect]
     Indication: FIBROMYALGIA
     Dosage: 100 MG (50 MG, 2 IN 1 D), ORAL
     Route: 048
     Dates: start: 20100601, end: 20100601
  5. BENICAR [Concomitant]
  6. LIPITOR [Concomitant]
  7. WATER PILL [Concomitant]

REACTIONS (10)
  - ABDOMINAL PAIN UPPER [None]
  - ARTHRALGIA [None]
  - BURNING SENSATION [None]
  - GAIT DISTURBANCE [None]
  - INSOMNIA [None]
  - MENTAL IMPAIRMENT [None]
  - MYALGIA [None]
  - NIGHTMARE [None]
  - SUICIDAL IDEATION [None]
  - SWELLING [None]
